FAERS Safety Report 9186092 (Version 2)
Quarter: 2013Q2

REPORT INFORMATION
  Report Type: Report from Study
  Country: DE (occurrence: DE)
  Receive Date: 20130325
  Receipt Date: 20130606
  Transmission Date: 20140414
  Serious: Yes (Other)
  Sender: FDA-Public Use
  Company Number: DE-ASTELLAS-2013EU002630

PATIENT
  Age: 59 Year
  Sex: Male

DRUGS (1)
  1. ENZALUTAMIDE [Suspect]
     Dosage: UNK
     Route: 065

REACTIONS (3)
  - Hot flush [Unknown]
  - Heart rate increased [Unknown]
  - Fear [Unknown]
